FAERS Safety Report 18469061 (Version 1)
Quarter: 2020Q4

REPORT INFORMATION
  Report Type: Spontaneous
  Country: BR (occurrence: BR)
  Receive Date: 20201105
  Receipt Date: 20201105
  Transmission Date: 20210114
  Serious: Yes (Disabling, Other)
  Sender: FDA-Public Use
  Company Number: BR-SA-2020SA292250

PATIENT

DRUGS (6)
  1. LANTUS [Suspect]
     Active Substance: INSULIN GLARGINE
     Dosage: 20 IU, QD (IN THE MORNING BEFORE LUNCH)
  2. PREDNISONE. [Concomitant]
     Active Substance: PREDNISONE
     Dosage: 5 MG, TID
  3. METHOTREXATE. [Concomitant]
     Active Substance: METHOTREXATE
     Dosage: UNK
  4. LANTUS [Suspect]
     Active Substance: INSULIN GLARGINE
     Indication: DIABETES MELLITUS
     Dosage: UNK UNK, BID
     Dates: start: 202006
  5. FIASP [Concomitant]
     Active Substance: INSULIN ASPART
     Indication: DIABETES MELLITUS
     Dosage: 8UI AFTER COFFEE AND 16UI BEFORE LUNCH, BID
     Route: 065
  6. PREDNISONE. [Concomitant]
     Active Substance: PREDNISONE
     Dosage: 20 MG

REACTIONS (7)
  - Polymyalgia rheumatica [Unknown]
  - Hyperglycaemia [Unknown]
  - Infection [Unknown]
  - Gait inability [Unknown]
  - Blister [Unknown]
  - Wheelchair user [Unknown]
  - Inappropriate schedule of product administration [Unknown]

NARRATIVE: CASE EVENT DATE: 202006
